FAERS Safety Report 9613299 (Version 2)
Quarter: 2013Q4

REPORT INFORMATION
  Report Type: Spontaneous
  Country: US (occurrence: US)
  Receive Date: 20131010
  Receipt Date: 20131028
  Transmission Date: 20140711
  Serious: Yes (Hospitalization)
  Sender: FDA-Public Use
  Company Number: US-BRISTOL-MYERS SQUIBB COMPANY-19466960

PATIENT
  Age: 94 Year
  Sex: Female
  Weight: 47.62 kg

DRUGS (1)
  1. COUMADIN [Suspect]
     Indication: ATRIAL FIBRILLATION

REACTIONS (2)
  - Fatigue [Unknown]
  - Rhinorrhoea [Not Recovered/Not Resolved]
